FAERS Safety Report 6739290-9 (Version None)
Quarter: 2010Q2

REPORT INFORMATION
  Report Type: 
  Country: None (occurrence: None)
  Receive Date: 20100525
  Receipt Date: 20100512
  Transmission Date: 20101027
  Serious: Yes (Hospitalization, Congenital Anomaly)
  Sender: FDA-Public Use
  Company Number: PHHY2010US28901

PATIENT
  Sex: Female
  Weight: 11.2 kg

DRUGS (5)
  1. EXJADE [Suspect]
     Indication: PANCYTOPENIA
     Dosage: 250 MG, QD
     Route: 048
     Dates: start: 20081126
  2. EXJADE [Suspect]
     Indication: IRON OVERLOAD
  3. PULMICORT [Suspect]
     Indication: ASTHMA
     Dosage: 0.5 MG, BID
  4. SINGULAIR [Suspect]
     Indication: ASTHMA
     Dosage: 4 MG, DAILY
     Route: 048
  5. ZYRTEC [Suspect]
     Indication: RHINITIS ALLERGIC
     Dosage: 2.5 MG, DAILY
     Route: 048

REACTIONS (3)
  - CONDITION AGGRAVATED [None]
  - EPISTAXIS [None]
  - PANCYTOPENIA [None]
